FAERS Safety Report 19810013 (Version 1)
Quarter: 2021Q3

REPORT INFORMATION
  Report Type: Report from Study
  Country: None (occurrence: US)
  Receive Date: 20210908
  Receipt Date: 20210908
  Transmission Date: 20211014
  Serious: Yes (Hospitalization)
  Sender: FDA-Public Use
  Company Number: US-ABBVIE-21K-163-4071634-00

PATIENT
  Sex: Male

DRUGS (1)
  1. SKYRIZI [Suspect]
     Active Substance: RISANKIZUMAB-RZAA
     Indication: PSORIASIS
     Dosage: AT WEEK 0 AND 4 THEN EVERY 12 WEEKS
     Route: 058
     Dates: start: 202103, end: 2021

REACTIONS (3)
  - COVID-19 [Unknown]
  - Pruritus [Unknown]
  - Illness [Unknown]

NARRATIVE: CASE EVENT DATE: 2021
